FAERS Safety Report 4492482-4 (Version None)
Quarter: 2004Q4

REPORT INFORMATION
  Report Type: 
  Country: None (occurrence: None)
  Receive Date: 20041103
  Receipt Date: 20041103
  Transmission Date: 20050328
  Serious: No
  Sender: FDA-Public Use
  Company Number: None

PATIENT
  Age: 56 Year
  Sex: Male
  Weight: 145.151 kg

DRUGS (1)
  1. LIPITOR [Suspect]
     Indication: BLOOD CHOLESTEROL INCREASED
     Dosage: 40 MG DAILY/EVENING ORAL
     Route: 048
     Dates: start: 20030119, end: 20040822

REACTIONS (6)
  - BLOOD CREATINE PHOSPHOKINASE INCREASED [None]
  - CARDIAC DISORDER [None]
  - DYSSTASIA [None]
  - EXERCISE CAPACITY DECREASED [None]
  - MUSCULAR WEAKNESS [None]
  - MYALGIA [None]
